FAERS Safety Report 11988134 (Version 2)
Quarter: 2016Q1

REPORT INFORMATION
  Report Type: Report from Study
  Country: FR (occurrence: FR)
  Receive Date: 20160202
  Receipt Date: 20160301
  Transmission Date: 20160526
  Serious: Yes (Hospitalization)
  Sender: FDA-Public Use
  Company Number: FR-EMD SERONO-8064503

PATIENT
  Age: 39 Year
  Sex: Female

DRUGS (1)
  1. REBIF [Suspect]
     Active Substance: INTERFERON BETA-1A
     Indication: MULTIPLE SCLEROSIS
     Dates: start: 20151214

REACTIONS (2)
  - Multiple sclerosis relapse [Not Recovered/Not Resolved]
  - Drug intolerance [Unknown]

NARRATIVE: CASE EVENT DATE: 20160121
